FAERS Safety Report 4518443-4 (Version None)
Quarter: 2004Q4

REPORT INFORMATION
  Report Type: 
  Country: None (occurrence: None)
  Receive Date: 20041202
  Receipt Date: 20041126
  Transmission Date: 20050328
  Serious: Yes (Hospitalization)
  Sender: FDA-Public Use
  Company Number: 25676

PATIENT
  Age: 60 Year
  Sex: Male

DRUGS (5)
  1. FLECAINIDE ACETATE [Suspect]
     Dosage: 200 MG (100 MG, 2 IN 1 DAY(S)) ORAL
     Route: 048
     Dates: start: 20030615, end: 20041008
  2. ART 50 (DIACEREIN) [Suspect]
     Dosage: 100 MG (50 MG, 2 IN 1 ) ORAL
     Route: 048
     Dates: start: 20040615, end: 20041008
  3. PREVISCAN (FLUINDIONE) [Suspect]
     Dosage: 20 MG (20 MG, 1 IN 1 DAY(S)) ORAL
     Route: 048
     Dates: start: 20040415, end: 20041008
  4. POTASSIUM CHLORIDE [Suspect]
     Dosage: 600 MG (600 MG, 1 IN 1 DAY(S)) ORAL
     Route: 048
     Dates: start: 20040915, end: 20041008
  5. FUNGIZONE [Concomitant]

REACTIONS (13)
  - AGRANULOCYTOSIS [None]
  - BIOPSY BONE MARROW ABNORMAL [None]
  - BONE MARROW DEPRESSION [None]
  - C-REACTIVE PROTEIN INCREASED [None]
  - HERPES ZOSTER [None]
  - INTERNATIONAL NORMALISED RATIO INCREASED [None]
  - LEUKOPENIA [None]
  - NEUTROPHIL COUNT INCREASED [None]
  - NORMOCHROMIC NORMOCYTIC ANAEMIA [None]
  - OVERDOSE [None]
  - PYREXIA [None]
  - RED BLOOD CELL SEDIMENTATION RATE INCREASED [None]
  - THROMBOCYTOPENIA [None]
